FAERS Safety Report 9742701 (Version 1)
Quarter: 2013Q4

REPORT INFORMATION
  Report Type: Spontaneous
  Country: US (occurrence: US)
  Receive Date: 20131210
  Receipt Date: 20131210
  Transmission Date: 20140711
  Serious: No
  Sender: FDA-Public Use
  Company Number: US-GILEAD-2009-0025681

PATIENT
  Sex: Male
  Weight: 77.11 kg

DRUGS (7)
  1. LETAIRIS [Suspect]
     Indication: PULMONARY ARTERIAL HYPERTENSION
     Route: 048
     Dates: start: 20081110
  2. TRUVADA [Concomitant]
  3. COUMADIN [Concomitant]
  4. NORVIR [Concomitant]
  5. KALETRA [Concomitant]
  6. ZERIT [Concomitant]
  7. ZIAGEN [Concomitant]

REACTIONS (1)
  - Headache [Unknown]
